FAERS Safety Report 4990629-4 (Version None)
Quarter: 2006Q2

REPORT INFORMATION
  Report Type: 
  Country: None (occurrence: None)
  Receive Date: 20060503
  Receipt Date: 20060501
  Transmission Date: 20061013
  Serious: Yes (Life-Threatening)
  Sender: FDA-Public Use
  Company Number: JP-SANOFI-SYNTHELABO-F01200601149

PATIENT
  Sex: Female
  Weight: 45 kg

DRUGS (3)
  1. OXALIPLATIN [Suspect]
     Indication: COLON CANCER
     Dosage: 100 MG/BODY=75.2 MG/M2, INFUSION D1
     Route: 042
     Dates: start: 20060112, end: 20060112
  2. FLUOROURACIL [Suspect]
     Indication: COLON CANCER
     Dosage: 300 MG/BODY=225.6 MG/M2 IN BOLUS THEN 500 MG/BODY=375.9 MG/M2 AS INFUSION, D1+2
     Route: 042
     Dates: start: 20060112, end: 20060112
  3. CALCIUM LEVOFOLINATE [Suspect]
     Indication: COLON CANCER
     Dosage: 100 MG/BODY=75.2 MG/M2, INFUSION D1+2
     Route: 042
     Dates: start: 20060112, end: 20060112

REACTIONS (1)
  - SHOCK [None]
